FAERS Safety Report 9387093 (Version 1)
Quarter: 2013Q3

REPORT INFORMATION
  Report Type: Spontaneous
  Country: AR (occurrence: AR)
  Receive Date: 20130708
  Receipt Date: 20130708
  Transmission Date: 20140515
  Serious: Yes (Other)
  Sender: FDA-Public Use
  Company Number: PHHY2013AR070411

PATIENT
  Age: 13 Year
  Sex: Female

DRUGS (3)
  1. AZATHIOPRINE [Suspect]
     Indication: AUTOIMMUNE HEPATITIS
     Dosage: 50 MG, PER DAY
  2. MYCOPHENOLATE MOFETIL [Suspect]
     Indication: AUTOIMMUNE HEPATITIS
     Dosage: 1.5 G, PER DAY
  3. PREDNISONE [Suspect]
     Indication: AUTOIMMUNE HEPATITIS
     Dosage: 40 MG, UNK

REACTIONS (5)
  - Autoimmune hepatitis [Recovered/Resolved]
  - Transaminases increased [Recovered/Resolved]
  - Hepatic fibrosis [Recovered/Resolved]
  - Condition aggravated [Recovered/Resolved]
  - Drug ineffective [Unknown]
